FAERS Safety Report 19433039 (Version 3)
Quarter: 2021Q2

REPORT INFORMATION
  Report Type: Report from Study
  Country: US (occurrence: US)
  Receive Date: 20210617
  Receipt Date: 20210630
  Transmission Date: 20210717
  Serious: Yes (Hospitalization)
  Sender: FDA-Public Use
  Company Number: US-EISAI MEDICAL RESEARCH-EC-2021-094556

PATIENT
  Age: 80 Year
  Sex: Female

DRUGS (3)
  1. LENVIMA [Suspect]
     Active Substance: LENVATINIB
     Indication: METASTASES TO LUNG
     Route: 048
     Dates: start: 20210620
  2. LENVIMA [Suspect]
     Active Substance: LENVATINIB
     Indication: THYROID CANCER METASTATIC
     Route: 048
     Dates: start: 20210414, end: 20210606
  3. LENVIMA [Suspect]
     Active Substance: LENVATINIB
     Indication: METASTASES TO LYMPH NODES
     Route: 048
     Dates: start: 20210611, end: 20210612

REACTIONS (3)
  - Hyperkeratosis [Recovered/Resolved]
  - Hypertension [Recovering/Resolving]
  - Pain in extremity [Not Recovered/Not Resolved]

NARRATIVE: CASE EVENT DATE: 202106
